FAERS Safety Report 4445138-8 (Version None)
Quarter: 2004Q3

REPORT INFORMATION
  Report Type: 
  Country: None (occurrence: None)
  Receive Date: 20040907
  Receipt Date: 20040820
  Transmission Date: 20050211
  Serious: Yes (Disabling)
  Sender: FDA-Public Use
  Company Number: S04-SWI-03896-01

PATIENT
  Age: 48 Year
  Sex: Female

DRUGS (4)
  1. CIPRALEX (ESCITALOPRAM) [Suspect]
     Dosage: 20 MG QD PO
     Route: 048
     Dates: start: 20030901, end: 20040101
  2. CIPRALEX (ESCITALOPRAM) [Suspect]
     Dates: start: 20040101, end: 20040710
  3. FEMOSTON ESTRADIOL/DYDROGESTERONE [Concomitant]
  4. PONSTEL [Concomitant]

REACTIONS (2)
  - AMNESIA [None]
  - ROAD TRAFFIC ACCIDENT [None]
